FAERS Safety Report 4941555-8 (Version None)
Quarter: 2006Q1

REPORT INFORMATION
  Report Type: 
  Country: None (occurrence: None)
  Receive Date: 20060308
  Receipt Date: 20060208
  Transmission Date: 20060701
  Serious: Yes (Hospitalization)
  Sender: FDA-Public Use
  Company Number: YEHQ20051263

PATIENT
  Age: 80 Year
  Sex: Female
  Weight: 70 kg

DRUGS (5)
  1. YM905(SOLIFENACIN) TABLET [Suspect]
     Indication: URINARY INCONTINENCE
     Dosage: 10 MG, ORAL
     Route: 048
  2. COAPROVEL (IRBESARTAN) [Concomitant]
  3. THYROXIN (LEVOTHYROXINE SODIUM) [Concomitant]
  4. AMLODIPIN 10 (AMLODIPINE) [Concomitant]
  5. BELOC-ZOC MITE (METOPROLOL SUCCINATE) [Concomitant]

REACTIONS (3)
  - CEREBROVASCULAR ACCIDENT [None]
  - HYPERTENSIVE CRISIS [None]
  - MUSCLE SPASMS [None]
